FAERS Safety Report 7874578-X (Version None)
Quarter: 2011Q4

REPORT INFORMATION
  Report Type: 
  Country: None (occurrence: None)
  Receive Date: 20111031
  Receipt Date: 20111024
  Transmission Date: 20120403
  Serious: Yes (Hospitalization, Other)
  Sender: FDA-Public Use
  Company Number: US-PFIZER INC-2011199204

PATIENT
  Sex: Male

DRUGS (6)
  1. CHANTIX [Suspect]
     Dosage: 0.5 MG/ 1MG
     Dates: start: 20070701, end: 20080501
  2. OXYCONTIN [Concomitant]
     Indication: PAIN
     Dosage: UNK
     Dates: start: 20040101
  3. SEROQUEL [Concomitant]
     Indication: DEPRESSION
     Dosage: UNK
     Dates: start: 20040101
  4. ZYRTEC [Concomitant]
     Indication: HYPERSENSITIVITY
     Dosage: UNK
     Dates: start: 19990101
  5. PERCOCET [Concomitant]
     Indication: PAIN
     Dosage: UNK
     Dates: start: 20040101
  6. CYMBALTA [Concomitant]
     Indication: DEPRESSION
     Dosage: UNK
     Dates: start: 20040101

REACTIONS (9)
  - INSOMNIA [None]
  - MEMORY IMPAIRMENT [None]
  - FATIGUE [None]
  - MOOD SWINGS [None]
  - SUICIDE ATTEMPT [None]
  - DEPRESSION [None]
  - ANXIETY [None]
  - INTENTIONAL OVERDOSE [None]
  - AGITATION [None]
